FAERS Safety Report 8811207 (Version 1)
Quarter: 2012Q4

REPORT INFORMATION
  Report Type: 
  Country: BR (occurrence: BR)
  Receive Date: 20120927
  Receipt Date: 20120927
  Transmission Date: 20130627
  Serious: Yes (Other)
  Sender: FDA-Public Use
  Company Number: PHHY2012BR083815

PATIENT
  Age: 64 Year
  Sex: Female
  Weight: 67 kg

DRUGS (1)
  1. ACLASTA [Suspect]
     Indication: BONE DISORDER
     Dosage: 1 application a year
     Route: 042
     Dates: start: 20120919

REACTIONS (10)
  - Dysentery [Recovering/Resolving]
  - Locked-in syndrome [Recovering/Resolving]
  - Decreased appetite [Recovering/Resolving]
  - Abdominal pain [Recovering/Resolving]
  - Bone pain [Recovering/Resolving]
  - Pain [Recovering/Resolving]
  - Nausea [Recovering/Resolving]
  - Vomiting [Recovering/Resolving]
  - Malaise [Recovering/Resolving]
  - Pyrexia [Recovering/Resolving]
